FAERS Safety Report 4538248-8 (Version None)
Quarter: 2004Q4

REPORT INFORMATION
  Report Type: 
  Country: None (occurrence: None)
  Receive Date: 20041221
  Receipt Date: 20041206
  Transmission Date: 20050328
  Serious: Yes (Death, Hospitalization)
  Sender: FDA-Public Use
  Company Number: 105614ISR

PATIENT
  Age: 63 Year
  Sex: Male

DRUGS (6)
  1. FLUOROURACIL [Suspect]
     Indication: OESOPHAGEAL CARCINOMA
     Dosage: 1530 MILLIGRAM, INTRAVENOUS NOS
     Route: 042
     Dates: start: 20041108, end: 20041112
  2. CISPLATIN [Suspect]
     Indication: OESOPHAGEAL CARCINOMA
     Dosage: 153 MILLIGRAM, INTRAVENOUS NOS
     Route: 042
     Dates: start: 20041108, end: 20041108
  3. ACENOCOUMAROL [Concomitant]
  4. MOLSIDOMINE [Concomitant]
  5. ATENOLOL [Concomitant]
  6. ATORVASTATIN [Concomitant]

REACTIONS (4)
  - BONE MARROW DEPRESSION [None]
  - NASAL NECROSIS [None]
  - STOMATITIS [None]
  - WEIGHT DECREASED [None]
